FAERS Safety Report 4283953-4 (Version None)
Quarter: 2004Q1

REPORT INFORMATION
  Report Type: 
  Country: None (occurrence: None)
  Receive Date: 20040202
  Receipt Date: 20040127
  Transmission Date: 20041129
  Serious: Yes (Hospitalization)
  Sender: FDA-Public Use
  Company Number: WAES 0401GBR00244

PATIENT
  Age: 57 Year
  Sex: Male
  Weight: 76 kg

DRUGS (9)
  1. ALLOPURINOL [Concomitant]
     Indication: PROPHYLAXIS
     Route: 048
     Dates: start: 20030310
  2. VINCRISTINE SULFATE [Concomitant]
     Indication: CHEMOTHERAPY
     Dates: start: 20030310
  3. AMOXICILLIN AND CLAVULANATE POTASSIUM [Concomitant]
     Indication: INFECTION
     Route: 048
     Dates: start: 20030417, end: 20030424
  4. DECADRON [Suspect]
     Indication: CHEMOTHERAPY
     Route: 048
     Dates: start: 20030407, end: 20030411
  5. DICLOFENAC [Suspect]
     Indication: PAIN
     Route: 048
     Dates: start: 20030417, end: 20030422
  6. DICLOFENAC [Suspect]
     Indication: INFLAMMATION
     Route: 048
     Dates: start: 20030417, end: 20030422
  7. DOXORUBICIN [Concomitant]
     Indication: CHEMOTHERAPY
     Dates: start: 20030310
  8. RANITIDINE [Concomitant]
     Indication: PROPHYLAXIS
     Route: 048
     Dates: start: 20030310, end: 20030422
  9. SULFAMETHOXAZOLE AND TRIMETHOPRIM [Concomitant]
     Indication: PROPHYLAXIS
     Route: 048
     Dates: start: 20030310

REACTIONS (3)
  - ABDOMINAL PAIN UPPER [None]
  - DIZZINESS [None]
  - UPPER GASTROINTESTINAL HAEMORRHAGE [None]
